FAERS Safety Report 17799034 (Version 3)
Quarter: 2021Q1

REPORT INFORMATION
  Report Type: Spontaneous
  Country: JP (occurrence: JP)
  Receive Date: 20200518
  Receipt Date: 20210311
  Transmission Date: 20210419
  Serious: Yes (Hospitalization, Other)
  Sender: FDA-Public Use
  Company Number: JP-ALLERGAN-2019776US

PATIENT
  Sex: Female

DRUGS (2)
  1. BOTOX [Suspect]
     Active Substance: ONABOTULINUMTOXINA
     Indication: HYPERTONIC BLADDER
     Dosage: 100 UNITS, SINGLE
     Route: 030
     Dates: start: 20200403, end: 20200403
  2. ANTIPLATELET AGENT [Concomitant]
     Active Substance: UNSPECIFIED INGREDIENT
     Dosage: UNK
     Dates: end: 20200327

REACTIONS (4)
  - Bladder tamponade [Recovered/Resolved]
  - Procedural haemorrhage [Recovered/Resolved]
  - Residual urine volume increased [Unknown]
  - Pyuria [Unknown]

NARRATIVE: CASE EVENT DATE: 20200403
